FAERS Safety Report 6381556-9 (Version None)
Quarter: 2009Q3

REPORT INFORMATION
  Report Type: 
  Country: None (occurrence: None)
  Receive Date: 20090925
  Receipt Date: 20090910
  Transmission Date: 20100115
  Serious: Yes (Other)
  Sender: FDA-Public Use
  Company Number: 000964

PATIENT
  Sex: Female

DRUGS (5)
  1. NEUPRO [Suspect]
     Dosage: (6 MG QD, 6 MG/24 H TRANSDERMAL), (TRANSDERMAL)
     Route: 062
  2. STALEVO 100 [Concomitant]
  3. MADOPAR /00349201/ [Concomitant]
  4. OMEPRAZOL AGEN [Concomitant]
  5. AMITRIPTYLINE [Concomitant]

REACTIONS (3)
  - APPLICATION SITE DERMATITIS [None]
  - APPLICATION SITE DISCOLOURATION [None]
  - TYPE IV HYPERSENSITIVITY REACTION [None]
